FAERS Safety Report 9267165 (Version 2)
Quarter: 2013Q2

REPORT INFORMATION
  Report Type: Spontaneous
  Country: US (occurrence: US)
  Receive Date: 20130502
  Receipt Date: 20130613
  Transmission Date: 20140414
  Serious: No
  Sender: FDA-Public Use
  Company Number: US-PFIZER INC-2013133270

PATIENT
  Age: 72 Year
  Sex: Female
  Weight: 65 kg

DRUGS (3)
  1. CADUET [Suspect]
     Indication: BLOOD CHOLESTEROL INCREASED
     Dosage: [AMLODIPINE 10 MG]/[ATORVASTATIN 40 MG], ONCE A DAY
     Route: 048
  2. CADUET [Suspect]
     Indication: HYPERTENSION
  3. EDARBYCLOR [Concomitant]
     Dosage: [AZILSARTAN MEDOXOMIL 40 MG]/[CHLORTALIDONE 25 MG], ONCE A DAY

REACTIONS (3)
  - Ear infection [Unknown]
  - Ear pain [Unknown]
  - Laryngitis [Unknown]
